FAERS Safety Report 12335474 (Version 1)
Quarter: 2016Q2

REPORT INFORMATION
  Report Type: Spontaneous
  Country: CH (occurrence: CH)
  Receive Date: 20160504
  Receipt Date: 20160504
  Transmission Date: 20160815
  Serious: Yes (Hospitalization, Other)
  Sender: FDA-Public Use
  Company Number: CH-BRISTOL-MYERS SQUIBB COMPANY-BMS-2016-030665

PATIENT
  Age: 52 Year
  Sex: Male
  Weight: 88 kg

DRUGS (3)
  1. CALCIMAGON [Concomitant]
     Active Substance: CALCIUM
     Indication: PRODUCT USED FOR UNKNOWN INDICATION
     Route: 065
     Dates: end: 20151228
  2. XGEVA [Concomitant]
     Active Substance: DENOSUMAB
     Indication: PRODUCT USED FOR UNKNOWN INDICATION
  3. YERVOY [Suspect]
     Active Substance: IPILIMUMAB
     Indication: MALIGNANT MELANOMA STAGE IV
     Dosage: 1 DF, UNK
     Route: 065
     Dates: start: 20151119

REACTIONS (5)
  - Nasopharyngitis [Recovered/Resolved]
  - Haemodialysis [Unknown]
  - Renal tubular necrosis [Not Recovered/Not Resolved]
  - Chills [Recovered/Resolved]
  - Nephrotic syndrome [Not Recovered/Not Resolved]

NARRATIVE: CASE EVENT DATE: 20151225
